FAERS Safety Report 4653708-7 (Version None)
Quarter: 2005Q2

REPORT INFORMATION
  Report Type: 
  Country: None (occurrence: None)
  Receive Date: 20050404
  Receipt Date: 20041115
  Transmission Date: 20051028
  Serious: No
  Sender: FDA-Public Use
  Company Number: US_0411108398

PATIENT
  Sex: Male

DRUGS (3)
  1. CYMBALTA [Suspect]
     Indication: DEPRESSION
     Dosage: 30 MG
     Dates: start: 20041108
  2. TYLENOL (CAPLET) [Concomitant]
  3. RESTORIL [Concomitant]

REACTIONS (1)
  - DRUG SCREEN POSITIVE [None]
